FAERS Safety Report 4495374-X (Version None)
Quarter: 2004Q4

REPORT INFORMATION
  Report Type: 
  Country: None (occurrence: None)
  Receive Date: 20041108
  Receipt Date: 20041027
  Transmission Date: 20050328
  Serious: Yes (Hospitalization, Other)
  Sender: FDA-Public Use
  Company Number: FR-BRISTOL-MYERS SQUIBB COMPANY-12753588

PATIENT
  Age: 25 Month
  Sex: Female

DRUGS (3)
  1. HOLOXAN [Suspect]
     Indication: RHABDOMYOSARCOMA
     Route: 042
     Dates: start: 20040830, end: 20040831
  2. ONCOVIN [Suspect]
     Indication: RHABDOMYOSARCOMA
     Route: 042
     Dates: start: 20040830, end: 20040830
  3. COSMEGEN [Suspect]
     Indication: RHABDOMYOSARCOMA
     Route: 042
     Dates: start: 20040830, end: 20040830

REACTIONS (5)
  - ACCIDENTAL OVERDOSE [None]
  - BONE MARROW DEPRESSION [None]
  - ERYTHEMA NODOSUM [None]
  - MEDICATION ERROR [None]
  - NEUROTOXICITY [None]
